FAERS Safety Report 6539476-2 (Version None)
Quarter: 2010Q1

REPORT INFORMATION
  Report Type: 
  Country: None (occurrence: None)
  Receive Date: 20100115
  Receipt Date: 20091201
  Transmission Date: 20100710
  Serious: Yes (Hospitalization)
  Sender: FDA-Public Use
  Company Number: A0832390A

PATIENT
  Age: 47 Year
  Sex: Male
  Weight: 147.3 kg

DRUGS (13)
  1. AVANDIA [Suspect]
     Indication: DIABETES MELLITUS
     Dosage: 4MG TWICE PER DAY
     Route: 048
     Dates: start: 20030101
  2. NIASPAN [Concomitant]
  3. HYDRALAZINE [Concomitant]
  4. TOPROL-XL [Concomitant]
  5. PRAVASTATIN SODIUM [Concomitant]
  6. METFORMIN [Concomitant]
  7. IMDUR [Concomitant]
  8. DIOVAN [Concomitant]
  9. NORVASC [Concomitant]
  10. LASIX [Concomitant]
  11. DYAZIDE [Concomitant]
  12. ZOCOR [Concomitant]
  13. CPAP [Concomitant]

REACTIONS (3)
  - BLOOD PRESSURE ABNORMAL [None]
  - CARDIAC FAILURE CONGESTIVE [None]
  - CEREBROVASCULAR ACCIDENT [None]
